FAERS Safety Report 16097139 (Version 1)
Quarter: 2019Q1

REPORT INFORMATION
  Report Type: Spontaneous
  Country: JP (occurrence: JP)
  Receive Date: 20190320
  Receipt Date: 20190320
  Transmission Date: 20190418
  Serious: Yes (Other)
  Sender: FDA-Public Use
  Company Number: JP-PFIZER INC-2019116168

PATIENT
  Age: 8 Decade
  Sex: Male

DRUGS (1)
  1. SUTENT [Suspect]
     Active Substance: SUNITINIB MALATE
     Indication: RENAL CELL CARCINOMA
     Dosage: UNK
     Dates: start: 201810

REACTIONS (3)
  - Epistaxis [Unknown]
  - Abdominal discomfort [Unknown]
  - Deafness [Unknown]

NARRATIVE: CASE EVENT DATE: 20181228
